FAERS Safety Report 7759242-X (Version None)
Quarter: 2011Q3

REPORT INFORMATION
  Report Type: 
  Country: None (occurrence: None)
  Receive Date: 20110919
  Receipt Date: 20110906
  Transmission Date: 20111222
  Serious: Yes (Death)
  Sender: FDA-Public Use
  Company Number: MX-SANOFI-AVENTIS-2011SA057805

PATIENT
  Age: 61 Year
  Sex: Male

DRUGS (3)
  1. SUPREFACT [Suspect]
     Indication: PROSTATE CANCER METASTATIC
     Dosage: FORM, FREQUENCY: SUBDERMIC IMPLANT EVERY 2 MONTHS
     Dates: start: 20000101, end: 20101213
  2. ANANDRON [Suspect]
     Indication: PROSTATE CANCER METASTATIC
     Route: 048
     Dates: start: 20000101, end: 20101213
  3. ALL OTHER THERAPEUTIC PRODUCTS [Concomitant]
     Dates: start: 20000101, end: 20101213

REACTIONS (5)
  - LOSS OF CONSCIOUSNESS [None]
  - SOMNOLENCE [None]
  - DISEASE PROGRESSION [None]
  - STUPOR [None]
  - MULTI-ORGAN FAILURE [None]
